FAERS Safety Report 7317118-6 (Version None)
Quarter: 2011Q1

REPORT INFORMATION
  Report Type: 
  Country: None (occurrence: None)
  Receive Date: 20110226
  Receipt Date: 20100927
  Transmission Date: 20110831
  Serious: No
  Sender: FDA-Public Use
  Company Number: US-ALLERGAN-1012483US

PATIENT
  Sex: Female

DRUGS (5)
  1. BOTOXA? [Suspect]
     Dosage: 100 UNITS, SINGLE
     Route: 023
     Dates: start: 20100224, end: 20100224
  2. BOTOXA? [Suspect]
     Dosage: 100 UNK, SINGLE
     Dates: start: 20100801, end: 20100801
  3. BOTOXA? [Suspect]
  4. BOTOXA? [Suspect]
     Indication: HYPERHIDROSIS
     Dosage: 100 UNITS, SINGLE
     Route: 023
     Dates: start: 20100224, end: 20100224
  5. BOTOXA? [Suspect]
     Dosage: 200 UNITS, SINGLE
     Dates: start: 20100501, end: 20100501

REACTIONS (1)
  - THERAPEUTIC RESPONSE DECREASED [None]
